FAERS Safety Report 5384120-3 (Version None)
Quarter: 2007Q3

REPORT INFORMATION
  Report Type: 
  Country: None (occurrence: None)
  Receive Date: 20070711
  Receipt Date: 20070710
  Transmission Date: 20080115
  Serious: Yes (Hospitalization)
  Sender: FDA-Public Use
  Company Number: US-BAYER-200614284BWH

PATIENT
  Age: 81 Year
  Sex: Male
  Weight: 84 kg

DRUGS (8)
  1. NEXAVAR [Suspect]
     Indication: METASTATIC RENAL CELL CARCINOMA
     Dosage: TOTAL DAILY DOSE: 800 MG  UNIT DOSE: 200 MG
     Route: 048
     Dates: start: 20060314, end: 20060402
  2. ZOMETA [Suspect]
  3. LEXAPRO [Concomitant]
  4. CALTRATE [Concomitant]
  5. GLUCOSAMINE [Concomitant]
  6. MULTI-VITAMIN [Concomitant]
  7. BENADRYL [Concomitant]
  8. VITAMIN B-12 [Concomitant]

REACTIONS (5)
  - CELLULITIS [None]
  - DRY SKIN [None]
  - FAECAL INCONTINENCE [None]
  - PRURITUS [None]
  - SKIN EXFOLIATION [None]
